FAERS Safety Report 10913700 (Version 1)
Quarter: 2015Q1

REPORT INFORMATION
  Report Type: Spontaneous
  Country: US (occurrence: None)
  Receive Date: 20150128
  Receipt Date: 20150128
  Transmission Date: 20150721
  Serious: No
  Sender: FDA-Public Use
  Company Number: 2014TUS013318

PATIENT
  Sex: Female

DRUGS (2)
  1. BRINTELLIX [Suspect]
     Active Substance: VORTIOXETINE HYDROBROMIDE
     Indication: BIPOLAR I DISORDER
     Route: 048
  2. ARIPIPRAZOLE. [Concomitant]
     Active Substance: ARIPIPRAZOLE

REACTIONS (1)
  - Psychotic disorder [None]
